FAERS Safety Report 10568488 (Version 3)
Quarter: 2014Q4

REPORT INFORMATION
  Report Type: Spontaneous
  Country: NL (occurrence: NL)
  Receive Date: 20141106
  Receipt Date: 20141126
  Transmission Date: 20150529
  Serious: Yes (Disabling, Other)
  Sender: FDA-Public Use
  Company Number: NL-ASTELLAS-2014EU012529

PATIENT
  Sex: Female
  Weight: 52 kg

DRUGS (17)
  1. L GLUTAMINE [Concomitant]
     Active Substance: GLUTAMINE
     Indication: FUNCTIONAL GASTROINTESTINAL DISORDER
     Route: 048
     Dates: start: 20131201
  2. LISINOPRIL. [Concomitant]
     Active Substance: LISINOPRIL
     Indication: PROTEINURIA
     Route: 048
     Dates: start: 20140618
  3. OMEPRAZOLE ACT AVIS [Concomitant]
     Indication: DYSPEPSIA
     Dosage: 40-80 MG, ONCE DAILY
     Route: 048
     Dates: start: 1992
  4. QUESTRAN [Concomitant]
     Active Substance: CHOLESTYRAMINE
     Indication: DIARRHOEA
     Dosage: 1 DF (4 G SACHET), 3-4 TIMES DAILY
     Route: 065
     Dates: start: 20060518
  5. PROGRAFT [Suspect]
     Active Substance: TACROLIMUS
     Dosage: 1X DAILY 4 CAPSULES A 1 MG AND 1X DAILY 3 CAPSULES A 1 MG
     Route: 048
     Dates: start: 20080530, end: 2008
  6. ARESTAL                            /00384301/ [Concomitant]
     Indication: DIARRHOEA
     Dosage: UNK UNK, AS NEEDED
     Route: 048
     Dates: start: 20050825
  7. CYANOCOBALAMIN. [Concomitant]
     Active Substance: CYANOCOBALAMIN
     Indication: VITAMIN B12 DEFICIENCY
     Route: 030
     Dates: start: 20060213
  8. PREDNISOLONE. [Concomitant]
     Active Substance: PREDNISOLONE
     Indication: RENAL TRANSPLANT
     Dosage: 1.5 DF (TABLEY), ONCE DAILY
     Route: 048
     Dates: start: 20010901
  9. KERUTABS [Concomitant]
     Indication: DIARRHOEA
     Dosage: 1-3 TABLETS WITH MILK/COMPONENTS
     Route: 065
  10. FOLIC ACID. [Concomitant]
     Active Substance: FOLIC ACID
     Indication: PRODUCT USED FOR UNKNOWN INDICATION
     Route: 048
     Dates: start: 20090713
  11. PROGRAFT [Suspect]
     Active Substance: TACROLIMUS
     Indication: PRODUCT USED FOR UNKNOWN INDICATION
     Dosage: 5 DF, TWICE DAILY, 1 MG
     Route: 048
     Dates: start: 20080422, end: 2008
  12. PROGRAFT [Suspect]
     Active Substance: TACROLIMUS
     Route: 048
     Dates: start: 20080707
  13. PANCREASE MT [Concomitant]
     Active Substance: PANCRELIPASE
     Indication: SUPPORTIVE CARE
     Dosage: 1 DF (I CAPSULE AT MEAL), THRICE DAILY
     Route: 065
     Dates: start: 20090207
  14. PROGRAFT [Suspect]
     Active Substance: TACROLIMUS
     Dosage: 4 DF, TWICE DAILY, OF 1 MG
     Route: 048
     Dates: start: 20080509, end: 2008
  15. NEORAL [Suspect]
     Active Substance: CYCLOSPORINE
     Indication: PRODUCT USED FOR UNKNOWN INDICATION
     Route: 048
     Dates: start: 20010901, end: 20080421
  16. COLECALCIFEROL [Concomitant]
     Active Substance: CHOLECALCIFEROL
     Indication: VITAMIN D DEFICIENCY
     Dosage: 0.5 ML, MONTHLY
     Route: 048
     Dates: start: 20131214
  17. CRANBERRY + VITAMIN C [Concomitant]
     Indication: URINARY TRACT INFECTION
     Dosage: 1 DF (CAPSULE), ONCE DAILY
     Route: 048
     Dates: start: 20140228

REACTIONS (15)
  - Insomnia [Unknown]
  - Vitamin B12 deficiency [Unknown]
  - Tinnitus [Not Recovered/Not Resolved]
  - Asthenia [Not Recovered/Not Resolved]
  - Fatigue [Not Recovered/Not Resolved]
  - Memory impairment [Not Recovered/Not Resolved]
  - Activities of daily living impaired [Unknown]
  - Neuropathy peripheral [Not Recovered/Not Resolved]
  - Faeces soft [Not Recovered/Not Resolved]
  - Alopecia [Not Recovered/Not Resolved]
  - Diarrhoea [Not Recovered/Not Resolved]
  - Lactose intolerance [Unknown]
  - Oesophageal disorder [Not Recovered/Not Resolved]
  - Amylase increased [Unknown]
  - Body temperature abnormal [Not Recovered/Not Resolved]

NARRATIVE: CASE EVENT DATE: 2001
